FAERS Safety Report 4347597-8 (Version None)
Quarter: 2004Q2

REPORT INFORMATION
  Report Type: 
  Country: None (occurrence: None)
  Receive Date: 20040422
  Receipt Date: 20040409
  Transmission Date: 20050107
  Serious: Yes (Other)
  Sender: FDA-Public Use
  Company Number: 2004010782

PATIENT
  Age: 40 Year
  Sex: Female

DRUGS (37)
  1. NEURONTIN [Suspect]
     Indication: NEUROPATHY
     Dosage: 1200 MG (QID), ORAL
     Route: 048
  2. ALL OTHER THERAPEUTIC PRODUCTS (ALL OTHER THERAPUTIC PRODUCTS) [Suspect]
     Indication: PAIN
  3. HYDROMORPHONE HCL [Concomitant]
  4. POTASSIUM CHLORIDE [Concomitant]
  5. INSULIN GLARGINE (INSULIN GLARGINE) [Concomitant]
  6. INSULIN LISPRO (INSULIN LISPRO) [Concomitant]
  7. ATORVASTATIN (ATORVASTATIN) [Concomitant]
  8. MAGNESIUM (MAGNESIUM) [Concomitant]
  9. OMEPRAZOLE [Concomitant]
  10. OXYCODONE HCL [Concomitant]
  11. PENTOXIFYLLINE [Concomitant]
  12. PREDNISONE [Concomitant]
  13. TORSEMIDE [Concomitant]
  14. CALCIUM CARBONATE (CALCIUM CARBONATE) [Concomitant]
  15. ACETAMINOPHEN [Concomitant]
  16. ASCORBIC ACID [Concomitant]
  17. TOCOPHEROL CONCENTRATE CAP [Concomitant]
  18. WARFARIN SODIUM [Concomitant]
  19. METOLAZONE [Concomitant]
  20. CETIRIZINE HCL [Concomitant]
  21. ALLOPURINOL [Concomitant]
  22. DARBEPOETIN ALFA (DARBEPOETIN ALFA) [Concomitant]
  23. DIPHENHYDRAMINE HCL [Concomitant]
  24. CALCITROL (ERGOCALCIFEROL, RETINOL, CALCIUM CARBONATE) [Concomitant]
  25. MYCOPHENOLATE MOFETIL (MYCOPHENOLATE MOFETIL) [Concomitant]
  26. CLONAZEPAM [Concomitant]
  27. COLCHICINE (COLCHICINE) [Concomitant]
  28. LOSARTAN POTASIUM (LOSARTAN POTASSIUM) [Concomitant]
  29. FOLIC ACID [Concomitant]
  30. FUROSEMIDE [Concomitant]
  31. AMITRIPTYLINE HCL [Concomitant]
  32. LORATADINE [Concomitant]
  33. EFLORNITHINE HYDROCHLORIDE (EFLORNITHINE HYDROCHLORIDE) [Concomitant]
  34. GLUCOSE (GLUCOSE) [Concomitant]
  35. GLUCAGON [Concomitant]
  36. METHENAMINE HIPPURATE (METHENAMINE HIPPURATE) [Concomitant]
  37. ONDANSETRON HCL [Concomitant]

REACTIONS (10)
  - BLOOD CALCIUM DECREASED [None]
  - BLOOD CREATININE INCREASED [None]
  - BLOOD UREA INCREASED [None]
  - DRUG INEFFECTIVE [None]
  - HEARING IMPAIRED [None]
  - OEDEMA [None]
  - PAIN EXACERBATED [None]
  - SERUM FERRITIN INCREASED [None]
  - VISION BLURRED [None]
  - XANTHOPSIA [None]
